FAERS Safety Report 5084355-3 (Version None)
Quarter: 2006Q3

REPORT INFORMATION
  Report Type: 
  Country: None (occurrence: None)
  Receive Date: 20060817
  Receipt Date: 20060817
  Transmission Date: 20061208
  Serious: Yes (Other)
  Sender: FDA-Public Use
  Company Number: None

PATIENT
  Age: 8 Year
  Sex: Female

DRUGS (4)
  1. COPPERTONE SPORT CONTINUOUS SPRAY SPF 30 TOPICAL SPRAY [Suspect]
     Indication: PROPHYLAXIS AGAINST SOLAR RADIATION
     Dosage: ONCE TOPICAL
     Route: 061
     Dates: start: 20060718, end: 20060718
  2. SINGULAIR [Concomitant]
  3. FLONASE [Concomitant]
  4. ZYRTEC [Concomitant]

REACTIONS (4)
  - CONFUSIONAL STATE [None]
  - LOSS OF CONSCIOUSNESS [None]
  - RESPIRATORY FUME INHALATION DISORDER [None]
  - THROAT TIGHTNESS [None]
